FAERS Safety Report 5043611-5 (Version None)
Quarter: 2006Q2

REPORT INFORMATION
  Report Type: 
  Country: None (occurrence: None)
  Receive Date: 20060628
  Receipt Date: 20060615
  Transmission Date: 20061013
  Serious: Yes (Other)
  Sender: FDA-Public Use
  Company Number: L06-FRA-02568-01

PATIENT
  Age: 18 Year
  Sex: Male

DRUGS (1)
  1. CARBAMAZEPINE [Suspect]
     Indication: PARTIAL SEIZURES

REACTIONS (4)
  - CONDITION AGGRAVATED [None]
  - CONVULSION [None]
  - HYPERVENTILATION [None]
  - MYOCLONUS [None]
